FAERS Safety Report 22197537 (Version 2)
Quarter: 2023Q2

REPORT INFORMATION
  Report Type: Spontaneous
  Country: US (occurrence: US)
  Receive Date: 20230411
  Receipt Date: 20230418
  Transmission Date: 20230722
  Serious: Yes (Hospitalization, Other)
  Sender: FDA-Public Use
  Company Number: US-BRISTOL-MYERS SQUIBB COMPANY-2023-047847

PATIENT
  Age: 81 Year
  Sex: Female

DRUGS (1)
  1. POMALYST [Suspect]
     Active Substance: POMALIDOMIDE
     Indication: Plasma cell myeloma
     Dosage: 2 MG, TAKE 1 CAPSULE (2MG TOTAL) BY MOUTH EVERY DAY FOR 3 WEEKS FOLLOWED BY 1 WEEK OFF MEDICATION
     Route: 048
     Dates: start: 20220913

REACTIONS (4)
  - Thrombosis [Recovering/Resolving]
  - Sciatica [Recovering/Resolving]
  - Bronchitis [Recovering/Resolving]
  - Pneumonia [Recovering/Resolving]
